FAERS Safety Report 7536793 (Version 4)
Quarter: 2013Q3

REPORT INFORMATION
  Report Type: Spontaneous
  Country: US (occurrence: US)
  Receive Date: 20100811
  Receipt Date: 20130812
  Transmission Date: 20140515
  Serious: Yes (Hospitalization, Disabling, Other)
  Sender: FDA-Public Use
  Company Number: US-ELI_LILLY_AND_COMPANY-US_0509122330

PATIENT
  Sex: Female
  Weight: 76.19 kg

DRUGS (12)
  1. ZYPREXA [Suspect]
     Indication: DEPRESSION
     Dosage: UNK, UNKNOWN
     Dates: start: 1998
  2. ZYPREXA [Suspect]
     Indication: PSYCHOTIC DISORDER
  3. TEGRETOL [Concomitant]
     Indication: EPILEPSY
     Dosage: 600 MG, BID
  4. TEGRETOL [Concomitant]
     Indication: CRANIOCEREBRAL INJURY
  5. LAMICTAL [Concomitant]
     Indication: EPILEPSY
     Dosage: 150 MG, EACH MORNING
  6. LAMICTAL [Concomitant]
     Dosage: 225 MG, EACH EVENING
  7. DEPAKOTE [Concomitant]
  8. LEVETIRACETAM [Concomitant]
     Indication: EPILEPSY
     Dosage: UNK
     Dates: start: 1999, end: 200811
  9. LEVETIRACETAM [Concomitant]
     Indication: CRANIOCEREBRAL INJURY
  10. FOLIC ACID [Concomitant]
     Dosage: 1 MG, QD
  11. PANTOPRAZOLE [Concomitant]
     Indication: GASTROOESOPHAGEAL REFLUX DISEASE
     Dosage: 40 MG, QD
  12. CRESTOR [Concomitant]
     Indication: BLOOD CHOLESTEROL INCREASED
     Dosage: 20 MG, EACH EVENING

REACTIONS (32)
  - Multi-organ disorder [Unknown]
  - Diabetic ketoacidosis [Unknown]
  - Convulsion [Unknown]
  - Glycosylated haemoglobin increased [Unknown]
  - Pancreatitis [Unknown]
  - Blood glucose increased [Unknown]
  - Loss of consciousness [Unknown]
  - Diabetes mellitus [Unknown]
  - Infertility [Unknown]
  - Gastritis [Unknown]
  - Chest pain [Unknown]
  - Hypertension [Unknown]
  - Protein urine [Unknown]
  - Limb discomfort [Unknown]
  - Hypoaesthesia [Unknown]
  - Tinea pedis [Unknown]
  - Diabetic foot [Unknown]
  - Diabetic neuropathy [Unknown]
  - Fungal infection [Unknown]
  - Weight decreased [Unknown]
  - Visual acuity reduced [Unknown]
  - Visual field defect [Unknown]
  - Dyspnoea [Unknown]
  - Gastrointestinal infection [Unknown]
  - Wound [Unknown]
  - Fall [Unknown]
  - Alopecia [Unknown]
  - Hypothyroidism [Unknown]
  - Aggression [Unknown]
  - Speech disorder [Unknown]
  - Tremor [Unknown]
  - Off label use [Unknown]
